FAERS Safety Report 16627316 (Version 1)
Quarter: 2019Q3

REPORT INFORMATION
  Report Type: Other
  Country: US (occurrence: US)
  Receive Date: 20190724
  Receipt Date: 20190724
  Transmission Date: 20191004
  Serious: Yes (Other)
  Sender: FDA-Public Use
  Company Number: US-BIOVITRUM-2019US2080

PATIENT
  Sex: Male

DRUGS (1)
  1. KINERET [Suspect]
     Active Substance: ANAKINRA
     Route: 058
     Dates: start: 20190410

REACTIONS (4)
  - Eye irritation [Unknown]
  - Eye haemorrhage [Unknown]
  - Joint lock [Unknown]
  - Dry eye [Unknown]
